FAERS Safety Report 5156476-8 (Version None)
Quarter: 2006Q4

REPORT INFORMATION
  Report Type: 
  Country: None (occurrence: None)
  Receive Date: 20061113
  Receipt Date: 20061031
  Transmission Date: 20070319
  Serious: Yes (Other)
  Sender: FDA-Public Use
  Company Number: 2006133762

PATIENT
  Age: 48 Year
  Sex: Male
  Weight: 108.8633 kg

DRUGS (5)
  1. SULFASALAZINE [Suspect]
     Indication: COLITIS ULCERATIVE
     Dosage: 4000 MG (1000 MG, 4 IN 1 D); 4 YRS AGO - ONGOING
  2. LISINOPRIL [Concomitant]
  3. MOTRIN [Concomitant]
  4. ASPIRIN [Concomitant]
  5. PRILOSEC [Concomitant]

REACTIONS (2)
  - NEPHROLITHIASIS [None]
  - PROTHROMBIN TIME PROLONGED [None]
